FAERS Safety Report 9406177 (Version 1)
Quarter: 2013Q3

REPORT INFORMATION
  Report Type: Report from Study
  Country: CA (occurrence: CA)
  Receive Date: 20130717
  Receipt Date: 20130717
  Transmission Date: 20140515
  Serious: Yes (Other)
  Sender: FDA-Public Use
  Company Number: CA-PFIZER INC-2011144864

PATIENT
  Age: 39 Year
  Sex: Female
  Weight: 80.8 kg

DRUGS (3)
  1. PREGABALIN [Suspect]
     Indication: FIBROMYALGIA
     Dosage: 165 MG, 1X/DAY
     Route: 048
     Dates: start: 20110604
  2. PREGABALIN [Suspect]
     Dosage: 330 MG, 1X/DAY
     Route: 048
     Dates: end: 20110626
  3. ACETAMINOPHEN [Concomitant]
     Indication: FIBROMYALGIA
     Dosage: 650 MG, AS NEEDED
     Route: 048
     Dates: start: 20110528

REACTIONS (1)
  - Glossitis [Recovered/Resolved]
